FAERS Safety Report 12270471 (Version 1)
Quarter: 2016Q2

REPORT INFORMATION
  Report Type: Spontaneous
  Country: US (occurrence: None)
  Receive Date: 20160414
  Receipt Date: 20160414
  Transmission Date: 20160815
  Serious: No
  Sender: FDA-Public Use
  Company Number: None

PATIENT
  Age: 56 Year
  Sex: Female
  Weight: 82.56 kg

DRUGS (14)
  1. IPRATROPIUM BROMIDE SOLUTION FOR INHALATION [Concomitant]
     Active Substance: IPRATROPIUM BROMIDE
  2. VITAMIN D3 [Concomitant]
     Active Substance: CHOLECALCIFEROL
  3. PROBIOTIC [Concomitant]
     Active Substance: PROBIOTICS NOS
  4. DALIRESP [Suspect]
     Active Substance: ROFLUMILAST
     Indication: CHRONIC OBSTRUCTIVE PULMONARY DISEASE
     Dosage: 1 TABLET (S) IN THE MORNING TAKEN BY MOUTH
     Route: 048
     Dates: start: 20160303, end: 20160412
  5. MUSCINEX [Concomitant]
  6. BUSPIRONE HCL [Concomitant]
     Active Substance: BUSPIRONE HYDROCHLORIDE
  7. DULERA [Concomitant]
     Active Substance: FORMOTEROL FUMARATE DIHYDRATE\MOMETASONE FUROATE
  8. NEBULIZER TREATMENTS - ALBUTERAL [Concomitant]
  9. TRAZODONE [Concomitant]
     Active Substance: TRAZODONE HYDROCHLORIDE
  10. AZELASTINE NOSE SPRAY [Concomitant]
  11. DIAZEPAM. [Concomitant]
     Active Substance: DIAZEPAM
  12. TEOHYLLINE ER [Concomitant]
  13. FLONASE [Concomitant]
     Active Substance: FLUTICASONE PROPIONATE
  14. PROVENTIL HFA [Concomitant]
     Active Substance: ALBUTEROL SULFATE

REACTIONS (21)
  - Mental impairment [None]
  - Pain in extremity [None]
  - Pollakiuria [None]
  - Weight decreased [None]
  - Muscle spasms [None]
  - Back pain [None]
  - Skin haemorrhage [None]
  - Wheezing [None]
  - Sputum increased [None]
  - Influenza like illness [None]
  - Dysgraphia [None]
  - Headache [None]
  - Nausea [None]
  - Feeling abnormal [None]
  - Sleep disorder [None]
  - Dyspnoea [None]
  - Impaired work ability [None]
  - Tremor [None]
  - Rhinorrhoea [None]
  - Musculoskeletal pain [None]
  - Asthenia [None]

NARRATIVE: CASE EVENT DATE: 20160412
